FAERS Safety Report 10045784 (Version 1)
Quarter: 2014Q1

REPORT INFORMATION
  Report Type: Spontaneous
  Country: FR (occurrence: FR)
  Receive Date: 20140328
  Receipt Date: 20140328
  Transmission Date: 20141002
  Serious: Yes (Death, Hospitalization)
  Sender: FDA-Public Use
  Company Number: FR-ASTRAZENECA-2014SE21467

PATIENT
  Age: 14884 Day
  Sex: Female

DRUGS (5)
  1. XEROQUEL [Suspect]
     Route: 048
     Dates: end: 20140317
  2. AMOXICILLIN [Suspect]
     Route: 048
     Dates: start: 20140306, end: 20140312
  3. PAROXETINE [Suspect]
     Route: 048
     Dates: end: 20140312
  4. ADEPAL [Suspect]
     Route: 048
     Dates: end: 20140312
  5. SODIUM VALPROATE [Suspect]
     Route: 048
     Dates: end: 20140319

REACTIONS (12)
  - Intestinal infarction [Fatal]
  - Portal vein thrombosis [Fatal]
  - Mesenteric vein thrombosis [Fatal]
  - Renal vein thrombosis [Fatal]
  - Splenic infarction [Fatal]
  - Splenic vein thrombosis [Fatal]
  - Renal failure [Fatal]
  - Circulatory collapse [Fatal]
  - General physical health deterioration [Fatal]
  - Venous thrombosis limb [Fatal]
  - Cholelithiasis [Unknown]
  - Therapy cessation [Fatal]
